FAERS Safety Report 4311414-2 (Version None)
Quarter: 2004Q1

REPORT INFORMATION
  Report Type: 
  Country: None (occurrence: None)
  Receive Date: 20040302
  Receipt Date: 20040220
  Transmission Date: 20041129
  Serious: Yes (Hospitalization, Other)
  Sender: FDA-Public Use
  Company Number: US-JNJFOC-20040204907

PATIENT
  Age: 73 Year
  Sex: Female

DRUGS (6)
  1. REMICADE [Suspect]
     Indication: RHEUMATOID ARTHRITIS
     Dosage: INTRAVENOUS
     Route: 042
     Dates: start: 20010326, end: 20030401
  2. METHOTREXATE [Concomitant]
  3. FOLIC ACID [Concomitant]
  4. ZESTRIL [Concomitant]
  5. PREDNISONE [Concomitant]
  6. RANITIDINE [Concomitant]

REACTIONS (1)
  - OVARIAN CANCER [None]
